FAERS Safety Report 10707478 (Version 2)
Quarter: 2015Q1

REPORT INFORMATION
  Report Type: Report from Study
  Country: BR (occurrence: BR)
  Receive Date: 20150113
  Receipt Date: 20150123
  Transmission Date: 20150721
  Serious: Yes (Hospitalization)
  Sender: FDA-Public Use
  Company Number: BR-ABBVIE-15K-020-1331218-00

PATIENT
  Age: 44 Year
  Sex: Male
  Weight: 74 kg

DRUGS (3)
  1. LOSARTAN [Concomitant]
     Active Substance: LOSARTAN
     Indication: HYPERTENSION
     Route: 048
  2. HYDROCHLOROTHIAZIDE. [Concomitant]
     Active Substance: HYDROCHLOROTHIAZIDE
     Indication: HYPERTENSION
     Route: 048
  3. HUMIRA [Suspect]
     Active Substance: ADALIMUMAB
     Indication: ANKYLOSING SPONDYLITIS
     Route: 058
     Dates: start: 201404, end: 20140730

REACTIONS (6)
  - Pyrexia [Recovered/Resolved]
  - Drug ineffective [Unknown]
  - Chromaturia [Unknown]
  - Pain [Recovered/Resolved]
  - Renal disorder [Not Recovered/Not Resolved]
  - Urine abnormality [Unknown]

NARRATIVE: CASE EVENT DATE: 201406
